FAERS Safety Report 4532441-6 (Version None)
Quarter: 2004Q4

REPORT INFORMATION
  Report Type: 
  Country: None (occurrence: None)
  Receive Date: 20041220
  Receipt Date: 20030605
  Transmission Date: 20050328
  Serious: Yes (Hospitalization, Other)
  Sender: FDA-Public Use
  Company Number: US-MERCK-0306USA00654

PATIENT
  Age: 73 Year
  Sex: Female
  Weight: 73 kg

DRUGS (7)
  1. VIOXX [Suspect]
     Route: 048
     Dates: start: 20000101, end: 20001030
  2. AVALIDE [Concomitant]
     Route: 065
     Dates: start: 20000801, end: 20001030
  3. PRILOSEC [Concomitant]
     Route: 065
  4. SYNTHROID [Concomitant]
     Route: 048
  5. ASPIRIN [Concomitant]
     Route: 065
  6. PYRIDOXINE [Concomitant]
     Route: 065
  7. VITAMIN E [Concomitant]
     Route: 065

REACTIONS (21)
  - ABDOMINAL PAIN LOWER [None]
  - ANGINA PECTORIS [None]
  - ANXIETY [None]
  - ARTHROPOD STING [None]
  - BLISTER [None]
  - BRONCHITIS [None]
  - BRONCHITIS ACUTE [None]
  - CARDIAC FAILURE CONGESTIVE [None]
  - CARPAL TUNNEL SYNDROME [None]
  - CELLULITIS [None]
  - DEEP VEIN THROMBOSIS [None]
  - EPISTAXIS [None]
  - HYPERTENSION [None]
  - INSOMNIA [None]
  - NASOPHARYNGITIS [None]
  - NEPHROPATHY [None]
  - RENAL FAILURE CHRONIC [None]
  - SKIN CANCER [None]
  - TINNITUS [None]
  - TONSILLAR DISORDER [None]
  - URINARY TRACT INFECTION [None]
